FAERS Safety Report 6765965-1 (Version None)
Quarter: 2010Q2

REPORT INFORMATION
  Report Type: 
  Country: None (occurrence: None)
  Receive Date: 20100611
  Receipt Date: 20100602
  Transmission Date: 20101027
  Serious: Yes (Hospitalization)
  Sender: FDA-Public Use
  Company Number: FR-ASTRAZENECA-2010SE25636

PATIENT
  Age: 19732 Day
  Sex: Female

DRUGS (16)
  1. NAROPIN [Suspect]
     Dates: start: 20100517, end: 20100517
  2. CLAMOXYL [Suspect]
     Route: 042
     Dates: start: 20100517, end: 20100517
  3. PROPOFOL FRESENIUS [Suspect]
     Route: 042
     Dates: start: 20100517, end: 20100517
  4. ATRACURIUM HOSPIRA [Suspect]
     Route: 042
     Dates: start: 20100517, end: 20100517
  5. ULTIVA [Suspect]
     Route: 042
     Dates: start: 20100517, end: 20100517
  6. METRONIDAZOLE MACO PHARMA [Suspect]
     Route: 042
     Dates: start: 20100517, end: 20100517
  7. NEURONTIN [Suspect]
     Route: 042
     Dates: start: 20100516, end: 20100516
  8. NEURONTIN [Suspect]
     Route: 042
     Dates: start: 20100517, end: 20100517
  9. NORMACOL [Suspect]
     Route: 054
     Dates: start: 20100516, end: 20100516
  10. MORPHINE [Suspect]
     Dosage: 5 MGS
     Route: 042
     Dates: start: 20100517, end: 20100517
  11. BETADINE [Suspect]
     Route: 003
     Dates: start: 20100517, end: 20100517
  12. DROPERIDOL [Suspect]
     Route: 042
     Dates: start: 20100517, end: 20100517
  13. LOVENOX [Suspect]
     Dosage: 4000 IU
     Route: 003
     Dates: start: 20100516, end: 20100517
  14. KETAMINE HCL [Suspect]
     Route: 042
     Dates: start: 20100517, end: 20100518
  15. ZOLPIDEM [Concomitant]
  16. DOLIPRANE [Concomitant]

REACTIONS (4)
  - HAEMATURIA [None]
  - LYMPHOPENIA [None]
  - OLIGURIA [None]
  - RENAL FAILURE ACUTE [None]
